FAERS Safety Report 8348699-1 (Version None)
Quarter: 2012Q2

REPORT INFORMATION
  Report Type: 
  Country: None (occurrence: None)
  Receive Date: 20120507
  Receipt Date: 20120424
  Transmission Date: 20120825
  Serious: Yes (Other)
  Sender: FDA-Public Use
  Company Number: 2012MA005347

PATIENT
  Age: 37 Year
  Sex: Female

DRUGS (4)
  1. FLUOXETINE HYDROCHLORIDE [Suspect]
     Dosage: 20 MG;QD
     Dates: start: 20110908, end: 20111130
  2. CLOBETASONE [Concomitant]
  3. CITALOPRAM HYDROBROMIDE [Suspect]
     Dates: start: 20120130
  4. DERMOL SOL [Concomitant]

REACTIONS (3)
  - GALACTORRHOEA [None]
  - HYPERPROLACTINAEMIA [None]
  - AMENORRHOEA [None]
